FAERS Safety Report 9252587 (Version 1)
Quarter: 2013Q2

REPORT INFORMATION
  Report Type: Spontaneous
  Country: US (occurrence: US)
  Receive Date: 20130424
  Receipt Date: 20130424
  Transmission Date: 20140414
  Serious: Yes (Other)
  Sender: FDA-Public Use
  Company Number: US-ASTRAZENECA-2013SE25604

PATIENT
  Age: 72 Year
  Sex: Female
  Weight: 77.1 kg

DRUGS (13)
  1. ATENOLOL [Suspect]
     Indication: HYPERTENSION
     Route: 048
     Dates: start: 1994, end: 2008
  2. NEXIUM [Suspect]
     Indication: GASTROOESOPHAGEAL REFLUX DISEASE
     Route: 048
     Dates: start: 2002, end: 201109
  3. NEXIUM [Suspect]
     Indication: GASTROOESOPHAGEAL REFLUX DISEASE
     Route: 048
     Dates: start: 201109, end: 201110
  4. PRILOSEC [Suspect]
     Indication: GASTROOESOPHAGEAL REFLUX DISEASE
     Dosage: DAILY
     Route: 048
     Dates: end: 2002
  5. LEVOTHYROXINE [Concomitant]
     Indication: THYROID DISORDER
     Route: 048
     Dates: start: 1995, end: 2012
  6. SYNTHROID [Concomitant]
     Indication: THYROID DISORDER
     Route: 048
     Dates: start: 2012, end: 201301
  7. SYNTHROID [Concomitant]
     Indication: THYROID DISORDER
     Route: 048
     Dates: start: 201301
  8. PROPRANOLOL [Concomitant]
     Indication: HYPERTENSION
     Route: 048
     Dates: start: 2008
  9. SINGULAR [Concomitant]
     Indication: MULTIPLE ALLERGIES
     Route: 048
  10. GLIPIZIDE [Concomitant]
     Indication: DIABETES MELLITUS
     Route: 048
  11. PREDNISONE [Concomitant]
     Indication: POLYMYALGIA RHEUMATICA
     Dosage: DAILY
     Route: 048
     Dates: end: 2010
  12. TRAMADOL [Concomitant]
     Indication: PAIN
     Dosage: PRN
     Route: 048
  13. FORTEO INJECTION [Concomitant]
     Indication: OSTEOPOROSIS
     Dosage: DAILY
     Route: 058
     Dates: start: 201002, end: 201010

REACTIONS (18)
  - Breast cancer female [Recovered/Resolved]
  - Deep vein thrombosis [Unknown]
  - Cataract [Unknown]
  - Polymyalgia rheumatica [Unknown]
  - Diabetes mellitus [Unknown]
  - Pain in extremity [Unknown]
  - Pain [Unknown]
  - Gait disturbance [Unknown]
  - Blood cholesterol increased [Unknown]
  - Multiple allergies [Unknown]
  - Diabetic neuropathy [Unknown]
  - Osteoporosis [Unknown]
  - Aphagia [Recovered/Resolved]
  - Thyroid disorder [Unknown]
  - Nodule [Unknown]
  - Tremor [Unknown]
  - Liver function test abnormal [Unknown]
  - Nausea [Recovered/Resolved]
